FAERS Safety Report 9351356 (Version 1)
Quarter: 2013Q2

REPORT INFORMATION
  Report Type: Spontaneous
  Country: FR (occurrence: FR)
  Receive Date: 20130617
  Receipt Date: 20130617
  Transmission Date: 20140414
  Serious: Yes (Life-Threatening, Hospitalization)
  Sender: FDA-Public Use
  Company Number: PHHY2013FR060650

PATIENT
  Age: 27 Year
  Sex: Male

DRUGS (2)
  1. LAMOTRIGINE SANDOZ [Suspect]
     Indication: DEPRESSION
     Dosage: 100 MG, DAILY
     Dates: end: 20130605
  2. EFFEXOR [Concomitant]

REACTIONS (2)
  - Subcutaneous abscess [Not Recovered/Not Resolved]
  - Disseminated intravascular coagulation [Not Recovered/Not Resolved]
